FAERS Safety Report 5949023-1 (Version None)
Quarter: 2008Q4

REPORT INFORMATION
  Report Type: 
  Country: None (occurrence: None)
  Receive Date: 20081111
  Receipt Date: 20081105
  Transmission Date: 20090506
  Serious: Yes (Other)
  Sender: FDA-Public Use
  Company Number: JP-PFIZER INC-2008082888

PATIENT
  Age: 59 Year
  Sex: Female

DRUGS (3)
  1. ATARAX [Suspect]
     Indication: DIZZINESS
     Route: 030
     Dates: start: 20080928, end: 20080928
  2. ATARAX [Suspect]
     Indication: RESTLESSNESS
  3. DRUG, UNSPECIFIED [Suspect]
     Route: 042

REACTIONS (3)
  - BLOOD PRESSURE DECREASED [None]
  - INJECTION SITE NECROSIS [None]
  - TREMOR [None]
